APPROVED DRUG PRODUCT: DOFETILIDE
Active Ingredient: DOFETILIDE
Strength: 0.25MG
Dosage Form/Route: CAPSULE;ORAL
Application: A210466 | Product #002 | TE Code: AB
Applicant: SUN PHARMACEUTICAL INDUSTRIES LTD
Approved: Oct 9, 2018 | RLD: No | RS: No | Type: RX